FAERS Safety Report 16483437 (Version 1)
Quarter: 2019Q2

REPORT INFORMATION
  Report Type: Spontaneous
  Country: US (occurrence: US)
  Receive Date: 20190627
  Receipt Date: 20190627
  Transmission Date: 20190711
  Serious: No
  Sender: FDA-Public Use
  Company Number: US-BAYER-2019-121959

PATIENT
  Sex: Female
  Weight: 59 kg

DRUGS (4)
  1. LOTRIMIN ANTIFUNGAL (CLOTRIMAZOLE) [Suspect]
     Active Substance: CLOTRIMAZOLE
     Indication: SKIN EXFOLIATION
     Dosage: UNK
     Route: 061
     Dates: start: 20190626
  2. AMLACTIN [Concomitant]
     Active Substance: AMMONIUM LACTATE
     Dosage: UNK
  3. CETAPHIL [SOFT SOAP] [Concomitant]
     Dosage: UNK
  4. AQUAPHOR (XIPAMIDE) [Concomitant]
     Active Substance: XIPAMIDE
     Dosage: UNK

REACTIONS (1)
  - Drug ineffective [Unknown]
